FAERS Safety Report 5571275-0 (Version None)
Quarter: 2007Q4

REPORT INFORMATION
  Report Type: 
  Country: None (occurrence: None)
  Receive Date: 20071221
  Receipt Date: 20070417
  Transmission Date: 20080405
  Serious: No
  Sender: FDA-Public Use
  Company Number: A0647621A

PATIENT

DRUGS (1)
  1. FLONASE [Suspect]
     Route: 045

REACTIONS (2)
  - EYE IRRITATION [None]
  - LACRIMATION INCREASED [None]
